FAERS Safety Report 6790724-3 (Version None)
Quarter: 2010Q2

REPORT INFORMATION
  Report Type: 
  Country: None (occurrence: None)
  Receive Date: 20100624
  Receipt Date: 20100621
  Transmission Date: 20101027
  Serious: Yes (Other)
  Sender: FDA-Public Use
  Company Number: US-ELI_LILLY_AND_COMPANY-US201006005447

PATIENT
  Sex: Female

DRUGS (5)
  1. HUMULIN 70/30 [Suspect]
     Indication: TYPE 2 DIABETES MELLITUS
     Dosage: 25 U, EACH MORNING
  2. HUMULIN 70/30 [Suspect]
     Dosage: 15 U, EACH EVENING
  3. HUMULIN 70/30 [Suspect]
     Dosage: 40 U, EACH MORNING
  4. HUMULIN 70/30 [Suspect]
     Dosage: 35 U, EACH EVENING
  5. LISINOPRIL [Concomitant]

REACTIONS (16)
  - ABDOMINAL DISTENSION [None]
  - BLOOD GLUCOSE DECREASED [None]
  - BLOOD GLUCOSE INCREASED [None]
  - BRAIN NEOPLASM [None]
  - DRUG INEFFECTIVE [None]
  - FACIAL PAIN [None]
  - FATIGUE [None]
  - FEELING ABNORMAL [None]
  - GAIT DISTURBANCE [None]
  - INCORRECT DOSE ADMINISTERED [None]
  - INJECTION SITE HAEMATOMA [None]
  - INJECTION SITE NODULE [None]
  - INJECTION SITE SWELLING [None]
  - INTERVERTEBRAL DISC PROTRUSION [None]
  - MEMORY IMPAIRMENT [None]
  - POOR QUALITY DRUG ADMINISTERED [None]
